FAERS Safety Report 5074465-9 (Version None)
Quarter: 2006Q3

REPORT INFORMATION
  Report Type: 
  Country: None (occurrence: None)
  Receive Date: 20060808
  Receipt Date: 20060530
  Transmission Date: 20061208
  Serious: Yes (Hospitalization, Other)
  Sender: FDA-Public Use
  Company Number: US-BOEHRINGER INGELHEIM PHARMACEUTICALS, INC.-2006-BP-06241PF

PATIENT
  Sex: Female
  Weight: 75.75 kg

DRUGS (4)
  1. SPIRIVA [Suspect]
     Indication: CHRONIC OBSTRUCTIVE PULMONARY DISEASE
     Route: 055
     Dates: end: 20060401
  2. SPIRIVA [Suspect]
     Indication: ASTHMA
  3. NEURONTIN [Suspect]
     Indication: PAIN
     Route: 048
  4. OTHER UNSPECIFIED MEDICATIONS [Concomitant]
     Dates: end: 20060401

REACTIONS (4)
  - ASTHMA [None]
  - CARDIAC FAILURE CONGESTIVE [None]
  - EMOTIONAL DISORDER [None]
  - SWELLING [None]
